FAERS Safety Report 8077815-4 (Version None)
Quarter: 2012Q1

REPORT INFORMATION
  Report Type: 
  Country: None (occurrence: None)
  Receive Date: 20120127
  Receipt Date: 20120115
  Transmission Date: 20120608
  Serious: Yes (Hospitalization, Other)
  Sender: FDA-Public Use
  Company Number: CA-PFIZER INC-2011289835

PATIENT
  Age: 78 Year
  Sex: Male
  Weight: 92 kg

DRUGS (10)
  1. PANTOPRAZOLE SODIUM [Suspect]
     Indication: GASTROOESOPHAGEAL REFLUX DISEASE
     Dosage: 40 MG, 1X/DAY
     Route: 048
     Dates: start: 20050401, end: 20110501
  2. ANDROGEL [Concomitant]
     Dosage: 1 PERCENT, UNK
  3. NORVASC [Concomitant]
     Dosage: 5 MG, UNK
  4. LIPITOR [Concomitant]
     Dosage: 10 MG, UNK
  5. DESLORATADINE [Concomitant]
     Dosage: 1 DOSAGE FORMS,IN THE MORNING
  6. NASONEX [Concomitant]
  7. ALDCTONE [Concomitant]
     Dosage: 25 MG, 1X/DAY
  8. GLUCOPHAGE [Concomitant]
     Dosage: 500 MG, 1X/DAY
  9. ATIVAN [Concomitant]
     Dosage: 20 MG, HS
  10. BENADRYL [Concomitant]

REACTIONS (13)
  - BLOOD POTASSIUM DECREASED [None]
  - PROSTATE CANCER [None]
  - CONVULSION [None]
  - BLOOD CALCIUM DECREASED [None]
  - ANGIOEDEMA [None]
  - FALL [None]
  - BLOOD MAGNESIUM DECREASED [None]
  - FATIGUE [None]
  - BALANCE DISORDER [None]
  - ARTHRITIS [None]
  - TREMOR [None]
  - LOSS OF CONSCIOUSNESS [None]
  - ASTHENIA [None]
